FAERS Safety Report 5040211-8 (Version None)
Quarter: 2006Q2

REPORT INFORMATION
  Report Type: 
  Country: None (occurrence: None)
  Receive Date: 20060630
  Receipt Date: 20060626
  Transmission Date: 20061013
  Serious: Yes (Hospitalization)
  Sender: FDA-Public Use
  Company Number: IT-SANOFI-SYNTHELABO-F01200601543

PATIENT
  Sex: Male

DRUGS (4)
  1. CAPECITABINE [Suspect]
     Dosage: 1750 MG TWICE DAILY (DAYS 1-14) EVERY 3 WEEKS
     Route: 048
     Dates: end: 20060518
  2. AVASTIN [Suspect]
     Route: 042
     Dates: end: 20060519
  3. GLIBOMET [Concomitant]
     Dosage: UNK
     Route: 065
     Dates: start: 19850615
  4. OXALIPLATIN [Suspect]
     Indication: COLORECTAL CANCER
     Route: 042
     Dates: start: 20060526, end: 20060526

REACTIONS (1)
  - TRANSIENT ISCHAEMIC ATTACK [None]
